FAERS Safety Report 7795137-3 (Version None)
Quarter: 2011Q4

REPORT INFORMATION
  Report Type: 
  Country: None (occurrence: None)
  Receive Date: 20111004
  Receipt Date: 20110923
  Transmission Date: 20120403
  Serious: Yes (Other)
  Sender: FDA-Public Use
  Company Number: US-JNJFOC-20110902195

PATIENT
  Sex: Male
  Weight: 63.5 kg

DRUGS (16)
  1. ISOSORBIDE DINITRATE [Concomitant]
     Indication: CARDIAC DISORDER
     Route: 048
  2. POLYETHYLENE GLYCOL [Concomitant]
     Indication: CONSTIPATION
     Route: 048
  3. MIRTAZAPINE [Concomitant]
     Indication: NERVOUSNESS
     Route: 048
  4. LUPRON [Concomitant]
     Indication: ILL-DEFINED DISORDER
     Route: 050
  5. DURAGESIC-100 [Concomitant]
     Indication: PAIN
     Route: 062
  6. ZYTIGA [Suspect]
     Indication: PROSTATE CANCER METASTATIC
     Route: 048
     Dates: start: 20110813
  7. MORPHINE [Concomitant]
     Indication: PAIN
     Route: 048
  8. TRIAMTERENE [Concomitant]
     Indication: OEDEMA PERIPHERAL
     Route: 048
     Dates: start: 20110501
  9. PREDNISONE [Suspect]
     Indication: NEOPLASM MALIGNANT
     Route: 048
  10. FERROUS SULFATE TAB [Concomitant]
     Indication: BLOOD IRON
     Route: 048
  11. ZOMETA [Concomitant]
     Indication: BONE DISORDER
     Route: 042
  12. ASPIRIN [Concomitant]
     Indication: CARDIAC DISORDER
     Route: 048
  13. NAMENDA [Concomitant]
     Indication: DEMENTIA
     Route: 048
  14. OMEPRAZOLUM [Concomitant]
     Indication: GASTRIC DISORDER
     Route: 048
  15. MEGESTROL ACETATE [Concomitant]
     Indication: APPETITE DISORDER
     Route: 048
  16. OXYCODONE HCL [Concomitant]
     Indication: PAIN
     Route: 048

REACTIONS (4)
  - OEDEMA PERIPHERAL [None]
  - PNEUMONIA [None]
  - COUGH [None]
  - INAPPROPRIATE SCHEDULE OF DRUG ADMINISTRATION [None]
